FAERS Safety Report 21640791 (Version 6)
Quarter: 2023Q1

REPORT INFORMATION
  Report Type: Report from Study
  Country: DE (occurrence: DE)
  Receive Date: 20221125
  Receipt Date: 20230213
  Transmission Date: 20230417
  Serious: Yes (Hospitalization)
  Sender: FDA-Public Use
  Company Number: DE-002147023-NVSC2022DE241601

PATIENT
  Age: 73 Year
  Sex: Female
  Weight: 54 kg

DRUGS (5)
  1. NISEVOKITUG [Suspect]
     Active Substance: NISEVOKITUG
     Indication: Colorectal cancer
     Dosage: 2100 MG, Q2W
     Route: 042
     Dates: start: 20220503
  2. FLUOROURACIL [Suspect]
     Active Substance: FLUOROURACIL
     Indication: Colorectal cancer metastatic
     Dosage: 640 MG, Q2W
     Route: 042
     Dates: start: 20220503
  3. BEVACIZUMAB [Suspect]
     Active Substance: BEVACIZUMAB
     Indication: Colorectal cancer metastatic
     Dosage: 277.5 MG, Q2W
     Route: 042
     Dates: start: 20220503
  4. LEUCOVORIN [Suspect]
     Active Substance: LEUCOVORIN
     Indication: Colorectal cancer metastatic
     Dosage: 640 MG, Q2W
     Route: 042
     Dates: start: 20220503
  5. BETNESOL-V [Concomitant]
     Indication: Rash
     Dosage: LOTION
     Route: 065
     Dates: start: 20220809

REACTIONS (2)
  - Acute kidney injury [Recovered/Resolved]
  - Thoracic vertebral fracture [Recovered/Resolved]

NARRATIVE: CASE EVENT DATE: 20221025
